FAERS Safety Report 4602634-8 (Version None)
Quarter: 2005Q1

REPORT INFORMATION
  Report Type: 
  Country: None (occurrence: None)
  Receive Date: 20050309
  Receipt Date: 20050225
  Transmission Date: 20050727
  Serious: Yes (Other)
  Sender: FDA-Public Use
  Company Number: DE-BRISTOL-MYERS SQUIBB COMPANY-12877379

PATIENT
  Age: 46 Year
  Sex: Female
  Weight: 59 kg

DRUGS (2)
  1. TAXOL [Suspect]
     Indication: BREAST CANCER METASTATIC
     Route: 042
     Dates: start: 20050215, end: 20050215
  2. XELODA [Suspect]
     Indication: BREAST CANCER METASTATIC
     Route: 048
     Dates: start: 20050215, end: 20050215

REACTIONS (2)
  - C-REACTIVE PROTEIN INCREASED [None]
  - WHITE BLOOD CELL COUNT INCREASED [None]
